FAERS Safety Report 4369855-3 (Version None)
Quarter: 2004Q2

REPORT INFORMATION
  Report Type: 
  Country: None (occurrence: None)
  Receive Date: 20040527
  Receipt Date: 20040518
  Transmission Date: 20050107
  Serious: Yes (Death, Other)
  Sender: FDA-Public Use
  Company Number: 2004033685

PATIENT
  Sex: 0

DRUGS (1)
  1. NEURONTIN [Suspect]
     Indication: ILL-DEFINED DISORDER
     Dosage: ORAL
     Route: 048

REACTIONS (2)
  - COMPLETED SUICIDE [None]
  - INTENTIONAL OVERDOSE [None]
